FAERS Safety Report 25429655 (Version 1)
Quarter: 2025Q2

REPORT INFORMATION
  Report Type: Spontaneous
  Country: US (occurrence: None)
  Receive Date: 20250612
  Receipt Date: 20250612
  Transmission Date: 20250717
  Serious: Yes (Hospitalization)
  Sender: FDA-CTU
  Company Number: None

PATIENT
  Sex: Male
  Weight: 11.7 kg

DRUGS (4)
  1. BACITRACIN [Suspect]
     Active Substance: BACITRACIN
     Indication: Antibiotic prophylaxis
     Route: 061
     Dates: start: 20250505, end: 20250505
  2. NEOSPORIN [Concomitant]
     Active Substance: BACITRACIN ZINC\NEOMYCIN SULFATE\POLYMYXIN B SULFATE
     Dates: start: 20250505, end: 20250505
  3. actetaminophen suppository PRN [Concomitant]
  4. bupivacaine PF 0.25% injection [Concomitant]

REACTIONS (1)
  - Drug hypersensitivity [None]
